FAERS Safety Report 14045298 (Version 2)
Quarter: 2017Q4

REPORT INFORMATION
  Report Type: Spontaneous
  Country: US (occurrence: US)
  Receive Date: 20171005
  Receipt Date: 20171016
  Transmission Date: 20180321
  Serious: Yes (Hospitalization)
  Sender: FDA-Public Use
  Company Number: US-LEXICON PHARMACEUTICALS, INC-17-1606-00938

PATIENT
  Age: 65 Year
  Sex: Male

DRUGS (9)
  1. OCTREOTIDE ACETATE. [Concomitant]
     Active Substance: OCTREOTIDE ACETATE
  2. ONDANSETRON [Concomitant]
     Active Substance: ONDANSETRON
  3. TELOTRISTAT ETHYL [Suspect]
     Active Substance: TELOTRISTAT ETHYL
     Indication: CARCINOID TUMOUR OF THE SMALL BOWEL
     Route: 048
     Dates: start: 20170324
  4. OPIUM. [Concomitant]
     Active Substance: OPIUM
  5. NIACIN. [Concomitant]
     Active Substance: NIACIN
  6. SPIRONOLACTONE. [Concomitant]
     Active Substance: SPIRONOLACTONE
  7. VITAMIN D3 COMPLETE [Concomitant]
  8. CAPECITABINE. [Concomitant]
     Active Substance: CAPECITABINE
  9. TEMODAR [Concomitant]
     Active Substance: TEMOZOLOMIDE

REACTIONS (2)
  - Procedural complication [Recovered/Resolved]
  - Pleural effusion [Unknown]

NARRATIVE: CASE EVENT DATE: 20170809
